FAERS Safety Report 25091866 (Version 1)
Quarter: 2025Q1

REPORT INFORMATION
  Report Type: Spontaneous
  Country: US (occurrence: US)
  Receive Date: 20250318
  Receipt Date: 20250318
  Transmission Date: 20250409
  Serious: No
  Sender: SANDOZ
  Company Number: US-SANDOZ-SDZ2025US015298

PATIENT
  Sex: Female

DRUGS (1)
  1. ESTRADIOL [Suspect]
     Active Substance: ESTRADIOL
     Indication: Product used for unknown indication
     Dosage: 0.025 MG, BIW
     Route: 062
     Dates: start: 20250219

REACTIONS (1)
  - Intermenstrual bleeding [Unknown]

NARRATIVE: CASE EVENT DATE: 20250301
